FAERS Safety Report 14794916 (Version 1)
Quarter: 2018Q2

REPORT INFORMATION
  Report Type: Report from Study
  Country: BR (occurrence: BR)
  Receive Date: 20180423
  Receipt Date: 20180423
  Transmission Date: 20180711
  Serious: Yes (Hospitalization, Other)
  Sender: FDA-Public Use
  Company Number: BR-SHIRE-BR201810178

PATIENT

DRUGS (4)
  1. ELAPRASE [Suspect]
     Active Substance: IDURSULFASE
     Indication: MUCOPOLYSACCHARIDOSIS II
     Dosage: 3 OR 4 VIALS, ONCE A WEEK
     Route: 065
     Dates: start: 200808
  2. OMEPRAZOLE. [Concomitant]
     Active Substance: OMEPRAZOLE
     Indication: ABDOMINAL OPERATION
  3. MAREVAN [Concomitant]
     Active Substance: WARFARIN SODIUM
     Indication: THROMBOSIS
  4. OMEPRAZOLE. [Concomitant]
     Active Substance: OMEPRAZOLE
     Indication: GASTROINTESTINAL TUBE INSERTION

REACTIONS (7)
  - Inappropriate schedule of drug administration [Unknown]
  - Gastrointestinal necrosis [Recovered/Resolved]
  - Weight increased [Unknown]
  - Gait inability [Not Recovered/Not Resolved]
  - Gastrointestinal perforation [Recovered/Resolved]
  - Off label use [Not Recovered/Not Resolved]
  - Thrombosis [Recovered/Resolved]

NARRATIVE: CASE EVENT DATE: 201710
